FAERS Safety Report 4975116-1 (Version None)
Quarter: 2006Q2

REPORT INFORMATION
  Report Type: 
  Country: None (occurrence: None)
  Receive Date: 20060411
  Receipt Date: 20060327
  Transmission Date: 20061013
  Serious: Yes (Death, Hospitalization)
  Sender: FDA-Public Use
  Company Number: 220987

PATIENT
  Age: 42 Year
  Sex: Female
  Weight: 70 kg

DRUGS (15)
  1. HERCEPTIN [Suspect]
     Indication: LUNG NEOPLASM MALIGNANT
     Dosage: 300 MG, SINGLE, INTRAVENOUS
     Route: 042
     Dates: start: 20050819, end: 20050819
  2. ROCEPHIN [Suspect]
     Indication: INFECTION
     Dosage: 2000 MG, QD, INTRAVENOUS
     Route: 042
     Dates: start: 20050823, end: 20050827
  3. TAXOTERE [Suspect]
     Indication: LUNG NEOPLASM MALIGNANT
     Dosage: 60 MG, INTRAVENOUS
     Route: 042
     Dates: start: 20050506, end: 20050805
  4. ZITHROMAX [Suspect]
     Indication: INFECTION
     Dosage: 500 MG, TID, ORAL
     Route: 048
     Dates: start: 20050817, end: 20050819
  5. DIFLUCAN [Suspect]
     Indication: INFECTION
     Dates: start: 20050815, end: 20050815
  6. BUSCOPAN (SCOPOLAMINE BUTYLBROMIDE) [Concomitant]
  7. BENERVA (THIAMINE HYDROCHLORIDE) [Concomitant]
  8. FRAGMIN [Concomitant]
  9. METHYLPREDNISOLONE [Concomitant]
  10. DIGOXIN [Concomitant]
  11. MORPHINE [Concomitant]
  12. CETIRIZINE HCL [Concomitant]
  13. LASIX [Concomitant]
  14. NAVOBAN (TROPISETRON HYDROCHLORIDE) [Concomitant]
  15. CAPECITABINE (CAPECITABINE) [Concomitant]

REACTIONS (27)
  - ALVEOLITIS ALLERGIC [None]
  - BLOOD CREATINE DECREASED [None]
  - BRONCHITIS [None]
  - CANDIDIASIS [None]
  - CONDITION AGGRAVATED [None]
  - DISTURBANCE IN ATTENTION [None]
  - DRUG HYPERSENSITIVITY [None]
  - ELECTROCARDIOGRAM ABNORMAL [None]
  - GENERAL PHYSICAL HEALTH DETERIORATION [None]
  - HYPERGLYCAEMIA [None]
  - LOSS OF CONSCIOUSNESS [None]
  - LUNG INFILTRATION [None]
  - MALIGNANT NEOPLASM PROGRESSION [None]
  - METASTASES TO LUNG [None]
  - OEDEMA [None]
  - OEDEMA PERIPHERAL [None]
  - PLATELET COUNT INCREASED [None]
  - PLEURAL EFFUSION [None]
  - PLEURAL NEOPLASM [None]
  - PULMONARY HYPERTENSION [None]
  - RESPIRATORY ACIDOSIS [None]
  - RIB FRACTURE [None]
  - SPUTUM CULTURE POSITIVE [None]
  - SUPRAVENTRICULAR TACHYCARDIA [None]
  - TACHYCARDIA [None]
  - TRICUSPID VALVE INCOMPETENCE [None]
  - UNRESPONSIVE TO PAIN STIMULI [None]
